FAERS Safety Report 7725861-X (Version None)
Quarter: 2011Q3

REPORT INFORMATION
  Report Type: 
  Country: None (occurrence: None)
  Receive Date: 20110830
  Receipt Date: 20110815
  Transmission Date: 20111222
  Serious: Yes (Other)
  Sender: FDA-Public Use
  Company Number: JPI-P-016696

PATIENT
  Age: 70 Year
  Sex: Male

DRUGS (2)
  1. XYREM [Suspect]
     Indication: APNOEA
     Dosage: 4.5 GM (2.25 GM, 2 IN 1 D), ORAL; 9 GM (4.5 GM, 2 IN 1 D), ORAL;
     Dates: start: 20090407, end: 20090101
  2. XYREM [Suspect]
     Indication: APNOEA
     Dosage: 4.5 GM (2.25 GM, 2 IN 1 D), ORAL; 9 GM (4.5 GM, 2 IN 1 D), ORAL;
     Dates: start: 20090421

REACTIONS (1)
  - MEDICAL DEVICE COMPLICATION [None]
